FAERS Safety Report 4758759-X (Version None)
Quarter: 2005Q3

REPORT INFORMATION
  Report Type: 
  Country: None (occurrence: None)
  Receive Date: 20050901
  Receipt Date: 20050623
  Transmission Date: 20060218
  Serious: Yes (Life-Threatening, Other)
  Sender: FDA-Public Use
  Company Number: 2005GB01636

PATIENT
  Age: 45 Year
  Sex: Female
  Weight: 85.9 kg

DRUGS (2)
  1. QUETIAPINE FUMARATE [Suspect]
     Indication: DEPRESSION
     Route: 048
  2. FLUOXETINE [Interacting]
     Indication: DEPRESSION
     Route: 048

REACTIONS (3)
  - CARDIAC ARREST [None]
  - DRUG INTERACTION [None]
  - MYOCARDIAL INFARCTION [None]
